FAERS Safety Report 8440468 (Version 5)
Quarter: 2012Q4

REPORT INFORMATION
  Report Type: 
  Country: GB (occurrence: GB)
  Receive Date: 20120305
  Receipt Date: 20120906
  Transmission Date: 20130627
  Serious: Yes (Hospitalization, Other)
  Sender: FDA-Public Use
  Company Number: PHFR2012GB001232

PATIENT
  Age: 72 Year
  Sex: Male

DRUGS (2)
  1. CLOZARIL [Suspect]
     Indication: SCHIZOPHRENIA
     Dosage: 700 mg
     Route: 048
     Dates: start: 20020507, end: 201203
  2. OLANZAPINE [Concomitant]
     Dates: start: 20120220

REACTIONS (12)
  - Cellulitis [Recovering/Resolving]
  - Feeling cold [Recovered/Resolved]
  - Hyperhidrosis [Recovered/Resolved]
  - Localised infection [Recovered/Resolved]
  - Body temperature increased [Recovered/Resolved]
  - Hypotension [Recovered/Resolved]
  - Neutropenia [Recovered/Resolved]
  - Lymphocyte count increased [Recovering/Resolving]
  - Agranulocytosis [Recovering/Resolving]
  - Body temperature decreased [Unknown]
  - White blood cell count increased [Recovering/Resolving]
  - Platelet count increased [Recovered/Resolved]
